FAERS Safety Report 23761585 (Version 1)
Quarter: 2024Q2

REPORT INFORMATION
  Report Type: Spontaneous
  Country: US (occurrence: None)
  Receive Date: 20240418
  Receipt Date: 20240418
  Transmission Date: 20240715
  Serious: Yes (Disabling)
  Sender: FDA-Public Use
  Company Number: None

PATIENT
  Age: 45 Year
  Sex: Female
  Weight: 68.4 kg

DRUGS (3)
  1. ASCORBIC ACID\BIOTIN\MINOXIDIL\PANTOTHENIC ACID\PYRIDOXINE\ZINC [Suspect]
     Active Substance: ASCORBIC ACID\BIOTIN\MINOXIDIL\PANTOTHENIC ACID\PYRIDOXINE\ZINC
     Indication: Hair growth abnormal
     Dosage: 150 TABLETS ORAL?
     Route: 048
     Dates: start: 20240210, end: 20240413
  2. ARMOUR THYROID [Concomitant]
  3. ZOLOFT [Concomitant]

REACTIONS (6)
  - Pruritus [None]
  - Scratch [None]
  - Skin haemorrhage [None]
  - Hot flush [None]
  - Night sweats [None]
  - Pain of skin [None]

NARRATIVE: CASE EVENT DATE: 20240401
